FAERS Safety Report 13733959 (Version 1)
Quarter: 2017Q3

REPORT INFORMATION
  Report Type: Spontaneous
  Country: US (occurrence: US)
  Receive Date: 20170707
  Receipt Date: 20170707
  Transmission Date: 20171127
  Serious: Yes (Other)
  Sender: FDA-Public Use
  Company Number: US-TEVA-785872USA

PATIENT
  Age: 14 Year

DRUGS (2)
  1. ALL-TRANS RETINOID ACID [Suspect]
     Active Substance: TRETINOIN
     Indication: ACUTE PROMYELOCYTIC LEUKAEMIA
     Route: 065
  2. ARSENIC TRIOXIDE [Suspect]
     Active Substance: ARSENIC TRIOXIDE
     Indication: ACUTE PROMYELOCYTIC LEUKAEMIA
     Dosage: DAY 3
     Route: 037

REACTIONS (7)
  - Hyperleukocytosis [Unknown]
  - Acute promyelocytic leukaemia differentiation syndrome [Unknown]
  - Alopecia [Unknown]
  - Fatigue [Unknown]
  - Headache [Unknown]
  - Deep vein thrombosis [Unknown]
  - Mental disorder [Unknown]
